FAERS Safety Report 5081657-1 (Version None)
Quarter: 2006Q3

REPORT INFORMATION
  Report Type: 
  Country: None (occurrence: None)
  Receive Date: 20060811
  Receipt Date: 20060803
  Transmission Date: 20061208
  Serious: Yes (Other)
  Sender: FDA-Public Use
  Company Number: B0433544A

PATIENT
  Age: 15 Year
  Sex: Male

DRUGS (1)
  1. LAMICTAL [Suspect]
     Indication: DRUG USE FOR UNKNOWN INDICATION
     Dosage: SEE DOSAGE TEXT

REACTIONS (1)
  - MANIA [None]
